FAERS Safety Report 9056885 (Version 2)
Quarter: 2013Q1

REPORT INFORMATION
  Report Type: Spontaneous
  Country: JP (occurrence: JP)
  Receive Date: 20130201
  Receipt Date: 20130228
  Transmission Date: 20140127
  Serious: Yes (Other)
  Sender: FDA-Public Use
  Company Number: JP-GLAXOSMITHKLINE-B0863278A

PATIENT
  Age: 12 None
  Sex: Female
  Weight: 37 kg

DRUGS (1)
  1. RELENZA [Suspect]
     Indication: INFLUENZA
     Dosage: 10MG TWICE PER DAY
     Route: 055
     Dates: start: 20130125, end: 20130126

REACTIONS (2)
  - Loss of consciousness [Recovered/Resolved]
  - Gait disturbance [Unknown]
